FAERS Safety Report 7980358-7 (Version None)
Quarter: 2011Q4

REPORT INFORMATION
  Report Type: 
  Country: None (occurrence: None)
  Receive Date: 20111214
  Receipt Date: 20111206
  Transmission Date: 20120403
  Serious: Yes (Death, Life-Threatening, Hospitalization, Other)
  Sender: FDA-Public Use
  Company Number: JP-CEPHALON-2011003859

PATIENT
  Sex: Male
  Weight: 73 kg

DRUGS (10)
  1. DOMPERIDONE [Concomitant]
     Dates: start: 20110214
  2. AMOXICILLIN AND CLAVULANATE POTASSIUM [Concomitant]
     Dates: start: 20110214
  3. BENDAMUSTINE HCL [Suspect]
     Indication: EXTRANODAL MARGINAL ZONE B-CELL LYMPHOMA (MALT TYPE)
     Route: 042
     Dates: start: 20110214, end: 20110604
  4. RED BLOOD CELLS, CONCENTRATED [Concomitant]
     Dates: start: 20110607, end: 20110624
  5. PLATELETS, CONCENTRATED [Concomitant]
     Dates: start: 20110620, end: 20110702
  6. BETAMETHASONE [Concomitant]
     Dates: end: 20110622
  7. ALLOPURINOL [Concomitant]
     Dates: start: 20110214, end: 20110605
  8. CIPROFLOXACIN HYDROCHLORIDE [Concomitant]
     Dates: start: 20110214
  9. LANSOPRAZOLE [Suspect]
     Dates: start: 20110602, end: 20110627
  10. SULFAMETHOXAZOLE AND TRIMETHOPRIM [Concomitant]
     Dates: end: 20110622

REACTIONS (15)
  - WHITE BLOOD CELL COUNT DECREASED [None]
  - DYSPNOEA [None]
  - ASPARTATE AMINOTRANSFERASE INCREASED [None]
  - ANGIOPATHY [None]
  - BLOOD LACTATE DEHYDROGENASE INCREASED [None]
  - PLATELET COUNT DECREASED [None]
  - PYREXIA [None]
  - DECREASED APPETITE [None]
  - DEHYDRATION [None]
  - ALANINE AMINOTRANSFERASE INCREASED [None]
  - BLOOD URIC ACID INCREASED [None]
  - BLOOD CALCIUM INCREASED [None]
  - PNEUMONIA CYTOMEGALOVIRAL [None]
  - LUNG INFECTION [None]
  - PANCYTOPENIA [None]
